FAERS Safety Report 5658116-8 (Version None)
Quarter: 2008Q1

REPORT INFORMATION
  Report Type: 
  Country: None (occurrence: None)
  Receive Date: 20080310
  Receipt Date: 20061220
  Transmission Date: 20080703
  Serious: No
  Sender: FDA-Public Use
  Company Number: US-BAYER-200615066BCC

PATIENT
  Age: 73 Year
  Sex: Male
  Weight: 79 kg

DRUGS (1)
  1. ALEVE [Suspect]
     Indication: ARTHRALGIA
     Dosage: TOTAL DAILY DOSE: 220 MG  UNIT DOSE: 220 MG
     Route: 048
     Dates: start: 20020101, end: 20061201

REACTIONS (2)
  - DRUG HYPERSENSITIVITY [None]
  - SKIN LESION [None]
